FAERS Safety Report 19250298 (Version 1)
Quarter: 2021Q2

REPORT INFORMATION
  Report Type: Spontaneous
  Country: US (occurrence: US)
  Receive Date: 20210513
  Receipt Date: 20210513
  Transmission Date: 20210717
  Serious: No
  Sender: FDA-Public Use
  Company Number: US-009507513-2105USA001109

PATIENT
  Age: 64 Year
  Sex: Female
  Weight: 90 kg

DRUGS (3)
  1. AMIKACIN. [Concomitant]
     Active Substance: AMIKACIN
     Indication: MYCOBACTERIUM ABSCESSUS INFECTION
     Dosage: UNK
     Route: 042
  2. SIVEXTRO [Suspect]
     Active Substance: TEDIZOLID PHOSPHATE
     Indication: MYCOBACTERIUM ABSCESSUS INFECTION
     Dosage: UNK, QD
     Route: 048
  3. PRIMAXIN IV [Suspect]
     Active Substance: CILASTATIN SODIUM\IMIPENEM
     Indication: MYCOBACTERIUM ABSCESSUS INFECTION
     Dosage: UNK

REACTIONS (1)
  - Off label use [Unknown]
